FAERS Safety Report 10693369 (Version 2)
Quarter: 2015Q1

REPORT INFORMATION
  Report Type: Spontaneous
  Country: US (occurrence: US)
  Receive Date: 20150106
  Receipt Date: 20150113
  Transmission Date: 20150720
  Serious: Yes (Other)
  Sender: FDA-Public Use
  Company Number: US-ABBVIE-14P-163-1328082-00

PATIENT
  Age: 48 Year
  Sex: Female
  Weight: 56.75 kg

DRUGS (1)
  1. LUPRON DEPOT [Suspect]
     Active Substance: LEUPROLIDE ACETATE
     Indication: UTERINE LEIOMYOMA
     Route: 030
     Dates: start: 20141029

REACTIONS (23)
  - Keratoconus [Not Recovered/Not Resolved]
  - Dyspnoea [Recovered/Resolved]
  - Muscular weakness [Recovering/Resolving]
  - Haematocrit decreased [Not Recovered/Not Resolved]
  - Depression [Not Recovered/Not Resolved]
  - Insomnia [Not Recovered/Not Resolved]
  - Oropharyngeal pain [Recovered/Resolved]
  - Hypertension [Not Recovered/Not Resolved]
  - Haemoglobin decreased [Not Recovered/Not Resolved]
  - Vision blurred [Not Recovered/Not Resolved]
  - Nervousness [Not Recovered/Not Resolved]
  - Epistaxis [Recovered/Resolved]
  - Agitation [Not Recovered/Not Resolved]
  - Pain in extremity [Recovered/Resolved]
  - Memory impairment [Not Recovered/Not Resolved]
  - Anxiety [Not Recovered/Not Resolved]
  - Chest pain [Recovered/Resolved]
  - Feeling abnormal [Not Recovered/Not Resolved]
  - Dizziness [Not Recovered/Not Resolved]
  - Paraesthesia [Not Recovered/Not Resolved]
  - Back pain [Recovering/Resolving]
  - Arthralgia [Not Recovered/Not Resolved]
  - Hot flush [Not Recovered/Not Resolved]

NARRATIVE: CASE EVENT DATE: 2014
